FAERS Safety Report 8139374-7 (Version None)
Quarter: 2012Q1

REPORT INFORMATION
  Report Type: 
  Country: None (occurrence: None)
  Receive Date: 20120215
  Receipt Date: 20120210
  Transmission Date: 20120608
  Serious: Yes (Hospitalization, Other)
  Sender: FDA-Public Use
  Company Number: US-BAYER-2012-014201

PATIENT
  Age: 83 Year
  Sex: Male
  Weight: 59 kg

DRUGS (5)
  1. ACETYLSALICYLIC ACID SRT [Suspect]
     Dosage: DAILY DOSE 81 MG
     Route: 048
  2. ACETYLSALICYLIC ACID SRT [Suspect]
     Dosage: DAILY DOSE 325 MG
     Route: 048
  3. PLAVIX [Suspect]
     Dosage: DAILY DOSE 75 MG
     Route: 048
     Dates: start: 20070101
  4. NEURONTIN [Concomitant]
     Dosage: UNK
  5. PROPRANOLOL [Concomitant]
     Dosage: UNK

REACTIONS (4)
  - MALAISE [None]
  - GASTROINTESTINAL SOUNDS ABNORMAL [None]
  - ABDOMINAL DISCOMFORT [None]
  - ULCER [None]
